FAERS Safety Report 11144580 (Version 1)
Quarter: 2015Q2

REPORT INFORMATION
  Report Type: Spontaneous
  Country: US (occurrence: None)
  Receive Date: 20150526
  Receipt Date: 20150526
  Transmission Date: 20150821
  Serious: Yes (Disabling)
  Sender: FDA-Public Use
  Company Number: None

PATIENT
  Age: 34 Year
  Sex: Female
  Weight: 63.5 kg

DRUGS (5)
  1. CLARITIN [Concomitant]
     Active Substance: LORATADINE
  2. BIOTIN [Concomitant]
     Active Substance: BIOTIN
  3. MELATONIN [Concomitant]
     Active Substance: MELATONIN
  4. CREST PRO-HEALTH CLINICAL [Suspect]
     Active Substance: CETYLPYRIDINIUM CHLORIDE
     Indication: DENTAL CARE
     Dosage: ONCE DAILY
     Dates: start: 20150520, end: 20150521
  5. AMBIEN [Concomitant]
     Active Substance: ZOLPIDEM TARTRATE

REACTIONS (5)
  - Swelling face [None]
  - Dry mouth [None]
  - Eating disorder [None]
  - Oral pain [None]
  - Salivary gland pain [None]

NARRATIVE: CASE EVENT DATE: 20150519
